FAERS Safety Report 5851347-3 (Version None)
Quarter: 2008Q3

REPORT INFORMATION
  Report Type: 
  Country: None (occurrence: None)
  Receive Date: 20080820
  Receipt Date: 20080819
  Transmission Date: 20090109
  Serious: Yes (Hospitalization, Disabling)
  Sender: FDA-Public Use
  Company Number: DK-RB-002237-08

PATIENT
  Sex: Female

DRUGS (2)
  1. SUBUTEX [Suspect]
     Dosage: 2 MG (10 TABLETS WEEKLY)
     Route: 048
     Dates: start: 20050101, end: 20080408
  2. TRUXAL [Concomitant]
     Indication: DRUG USE FOR UNKNOWN INDICATION
     Dosage: UNKNOWN DOSING INFORMATION.
     Dates: start: 20030101, end: 20080408

REACTIONS (3)
  - COMPARTMENT SYNDROME [None]
  - FACTOR VIII DEFICIENCY [None]
  - INCORRECT ROUTE OF DRUG ADMINISTRATION [None]
